FAERS Safety Report 20566810 (Version 1)
Quarter: 2022Q1

REPORT INFORMATION
  Report Type: Spontaneous
  Country: None (occurrence: FR)
  Receive Date: 20220308
  Receipt Date: 20220308
  Transmission Date: 20220423
  Serious: Yes (Hospitalization)
  Sender: FDA-Public Use
  Company Number: FR-B.Braun Medical Inc.-2126564

PATIENT
  Age: 44 Year
  Sex: Male

DRUGS (3)
  1. METRONIDAZOLE [Suspect]
     Active Substance: METRONIDAZOLE
  2. CEFTRIAXONE [Suspect]
     Active Substance: CEFTRIAXONE
  3. MINISINTROM [Concomitant]
     Active Substance: ACENOCOUMAROL

REACTIONS (1)
  - Prothrombin time shortened [Recovered/Resolved]
